FAERS Safety Report 17448748 (Version 4)
Quarter: 2022Q2

REPORT INFORMATION
  Report Type: Report from Study
  Country: US (occurrence: US)
  Receive Date: 20200224
  Receipt Date: 20220513
  Transmission Date: 20220720
  Serious: Yes (Hospitalization)
  Sender: FDA-Public Use
  Company Number: US-TEVA-2020-US-1187539

PATIENT
  Age: 39 Year
  Sex: Female
  Weight: 54.4 kg

DRUGS (7)
  1. CLOZAPINE [Suspect]
     Active Substance: CLOZAPINE
     Indication: Bipolar disorder
     Route: 065
  2. CLOZAPINE [Suspect]
     Active Substance: CLOZAPINE
     Indication: Mania
     Dosage: 200 MG HS
     Route: 065
  3. CLOZAPINE [Suspect]
     Active Substance: CLOZAPINE
     Indication: Psychotic behaviour
  4. DEPAKOTE [Concomitant]
     Active Substance: DIVALPROEX SODIUM
     Dosage: 500 MG, DELAYED RELEASE, Q 8 HOURS
     Route: 065
  5. INVEGA [Concomitant]
     Active Substance: PALIPERIDONE
     Route: 065
  6. INVEGA [Concomitant]
     Active Substance: PALIPERIDONE
     Dosage: 117 MG IM MONTHLY
     Route: 030
  7. ALBUTEROL [Concomitant]
     Active Substance: ALBUTEROL
     Dosage: INHALER, PRN
     Route: 065

REACTIONS (5)
  - Panic reaction [Unknown]
  - Mania [Unknown]
  - Mood swings [Recovering/Resolving]
  - Anxiety [Recovering/Resolving]
  - Psychotic disorder [Recovering/Resolving]

NARRATIVE: CASE EVENT DATE: 20200212
